FAERS Safety Report 20091193 (Version 1)
Quarter: 2021Q4

REPORT INFORMATION
  Report Type: Spontaneous
  Country: AU (occurrence: AU)
  Receive Date: 20211119
  Receipt Date: 20211119
  Transmission Date: 20220303
  Serious: Yes (Other)
  Sender: FDA-Public Use
  Company Number: AU-ELI_LILLY_AND_COMPANY-AU202111005552

PATIENT
  Sex: Male

DRUGS (6)
  1. FLUOXETINE HYDROCHLORIDE [Suspect]
     Active Substance: FLUOXETINE HYDROCHLORIDE
     Indication: Product used for unknown indication
     Dosage: 20 MG, DAILY
     Route: 065
  2. CLOZARIL [Suspect]
     Active Substance: CLOZAPINE
     Indication: Schizophrenia
     Dosage: 300 MG, DAILY (EACH EVENING)
     Route: 048
     Dates: start: 20210917
  3. CLOZARIL [Suspect]
     Active Substance: CLOZAPINE
     Dosage: 325 MG, DAILY (EACH EVENING)
     Route: 048
  4. LORAZEPAM [Suspect]
     Active Substance: LORAZEPAM
     Indication: Anxiety
     Dosage: 3 MG, DAILY (1 MG MANE/2 MG MIDDAY)
     Route: 065
  5. METOPROLOL [Suspect]
     Active Substance: METOPROLOL
     Indication: Product used for unknown indication
     Dosage: 25 MG, BID
     Route: 065
  6. DOCUSATE SODIUM\SENNOSIDES [Suspect]
     Active Substance: DOCUSATE SODIUM\SENNOSIDES
     Indication: Product used for unknown indication
     Dosage: UNK UNK, BID

REACTIONS (3)
  - Sinus tachycardia [Unknown]
  - Tachycardia [Unknown]
  - Hallucination, auditory [Unknown]
